FAERS Safety Report 8971238 (Version 2)
Quarter: 2013Q1

REPORT INFORMATION
  Report Type: Spontaneous
  Country: JP (occurrence: JP)
  Receive Date: 20121218
  Receipt Date: 20130131
  Transmission Date: 20140127
  Serious: No
  Sender: FDA-Public Use
  Company Number: JP-MERCK-1212JPN005973

PATIENT
  Age: 37 Year
  Sex: Male

DRUGS (7)
  1. REFLEX [Suspect]
     Indication: DEPRESSION
     Dosage: 15 MG, UNK
     Route: 048
     Dates: start: 20120831, end: 20121109
  2. PAXIL [Concomitant]
     Route: 048
  3. ETHYL LOFLAZEPATE [Concomitant]
     Indication: ANXIETY DISORDER
     Dosage: 2 MG, QD
     Route: 048
     Dates: start: 20110528
  4. PAROXETINE HYDROCHLORIDE [Concomitant]
     Indication: DEPRESSION
     Dosage: 25 MG, UNK
     Route: 048
     Dates: start: 20111013, end: 20120830
  5. PAROXETINE HYDROCHLORIDE [Concomitant]
     Dosage: 12.5 MG, UNK
     Route: 048
     Dates: start: 20120831
  6. ETIZOLAM [Concomitant]
     Indication: ANXIETY DISORDER
     Dosage: 0.5 MG, UNK
     Route: 048
     Dates: start: 20111208
  7. MOSAPRIDE CITRATE [Concomitant]
     Indication: DEPRESSION
     Dosage: 5 MG, UNK
     Route: 048
     Dates: start: 20111013

REACTIONS (1)
  - Drug-induced liver injury [Recovered/Resolved]
